FAERS Safety Report 5911769-9 (Version None)
Quarter: 2008Q4

REPORT INFORMATION
  Report Type: 
  Country: None (occurrence: None)
  Receive Date: 20081008
  Receipt Date: 20080926
  Transmission Date: 20090506
  Serious: Yes (Other)
  Sender: FDA-Public Use
  Company Number: US-RANBAXY-2008US-16687

PATIENT

DRUGS (5)
  1. ISOTRETINOIN [Suspect]
     Indication: DRUG USE FOR UNKNOWN INDICATION
     Dosage: 20 MG, TID
     Route: 048
     Dates: start: 20080317, end: 20080421
  2. ISOTRETINOIN [Suspect]
     Dosage: 20 MG, BID
     Route: 048
     Dates: start: 20080422, end: 20080724
  3. AMNESTEEM [Suspect]
     Indication: DRUG USE FOR UNKNOWN INDICATION
     Dosage: 40 MG, UNK
     Dates: start: 20080317, end: 20080724
  4. AMNESTEEM [Suspect]
     Dosage: 20 MG, UNK
  5. ORAL CONTRACEPTIVE [Concomitant]
     Indication: ORAL CONTRACEPTION
     Route: 048

REACTIONS (4)
  - ECTOPIC PREGNANCY [None]
  - ECTOPIC PREGNANCY TERMINATION [None]
  - FATIGUE [None]
  - SINUS HEADACHE [None]
